FAERS Safety Report 18493743 (Version 2)
Quarter: 2020Q4

REPORT INFORMATION
  Report Type: Spontaneous
  Country: US (occurrence: US)
  Receive Date: 20201112
  Receipt Date: 20201123
  Transmission Date: 20210114
  Serious: Yes (Other)
  Sender: FDA-Public Use
  Company Number: US-HEALTHCARE PHARMACEUTICALS LTD.-2095842

PATIENT
  Sex: Female

DRUGS (7)
  1. DOXORUBICIN HYDROCHLORIDE. [Suspect]
     Active Substance: DOXORUBICIN HYDROCHLORIDE
     Indication: BREAST CANCER STAGE III
     Route: 065
     Dates: start: 201804, end: 2018
  2. IRINOTECAN HYDROCHLORIDE. [Suspect]
     Active Substance: IRINOTECAN HYDROCHLORIDE
     Route: 065
     Dates: start: 201804, end: 202010
  3. ATEZOLIZUMAB. [Suspect]
     Active Substance: ATEZOLIZUMAB
     Route: 065
     Dates: start: 201804, end: 202010
  4. DOCETAXEL. [Suspect]
     Active Substance: DOCETAXEL
     Route: 065
     Dates: start: 201804, end: 2018
  5. ERIBULIN [Suspect]
     Active Substance: ERIBULIN
     Route: 065
     Dates: start: 201804, end: 202010
  6. BEVACIZUMAB. [Suspect]
     Active Substance: BEVACIZUMAB
     Route: 065
     Dates: start: 201804, end: 202010
  7. NAB-PACLITAXEL [Suspect]
     Active Substance: PACLITAXEL
     Route: 065
     Dates: start: 201804, end: 202010

REACTIONS (2)
  - Disease progression [Not Recovered/Not Resolved]
  - Refractory cancer [Not Recovered/Not Resolved]

NARRATIVE: CASE EVENT DATE: 2018
